FAERS Safety Report 5229728-0 (Version None)
Quarter: 2007Q1

REPORT INFORMATION
  Report Type: 
  Country: None (occurrence: None)
  Receive Date: 20070130
  Receipt Date: 20070116
  Transmission Date: 20070707
  Serious: Yes (Death, Hospitalization)
  Sender: FDA-Public Use
  Company Number: 226756

PATIENT
  Age: 47 Year
  Sex: Female
  Weight: 46.6 kg

DRUGS (8)
  1. AVASTIN [Suspect]
     Indication: COLORECTAL CANCER METASTATIC
     Dosage: 300 MG, Q2W, INTRAVENOUS
     Route: 042
     Dates: start: 20051020, end: 20060619
  2. IRINOTECAN HCL [Suspect]
     Indication: COLORECTAL CANCER METASTATIC
     Dosage: 280 MG, Q2W, INTRAVENOUS
     Route: 042
     Dates: start: 20051020, end: 20060619
  3. FLUOROURACIL [Suspect]
     Indication: COLORECTAL CANCER METASTATIC
     Dosage: 3840 MG, Q2W, INTRAVENOUS
     Route: 042
     Dates: start: 20051020, end: 20060619
  4. DOLOGESIC-32 (ACETAMINOPHEN, PROPOXYPHENE NAPSYLATE) [Concomitant]
  5. METHADONE HCL [Concomitant]
  6. PROTHIADEN (DOTHIEPIN HYDROCHLORIDE) [Concomitant]
  7. DIAMICRON (GLICLAZIDE) [Concomitant]
  8. LEUCOVORIN CALCIUM [Suspect]
     Indication: COLORECTAL CANCER
     Dosage: 320 MG, Q2W, INTRAVENOUS
     Route: 042
     Dates: start: 20051020, end: 20060619

REACTIONS (14)
  - ABDOMINAL WOUND DEHISCENCE [None]
  - ARRHYTHMIA [None]
  - ASCITES [None]
  - BLOOD ALBUMIN INCREASED [None]
  - BLOOD POTASSIUM DECREASED [None]
  - DISEASE PROGRESSION [None]
  - GASTROINTESTINAL PERFORATION [None]
  - GENERAL PHYSICAL HEALTH DETERIORATION [None]
  - HAEMOGLOBIN DECREASED [None]
  - HEPATIC FAILURE [None]
  - INTESTINAL DILATATION [None]
  - METASTASES TO GASTROINTESTINAL TRACT [None]
  - METASTASES TO PERITONEUM [None]
  - PURULENT DISCHARGE [None]
